FAERS Safety Report 19180041 (Version 3)
Quarter: 2021Q2

REPORT INFORMATION
  Report Type: Spontaneous
  Country: US (occurrence: US)
  Receive Date: 20210426
  Receipt Date: 20210518
  Transmission Date: 20210717
  Serious: No
  Sender: FDA-Public Use
  Company Number: US-GLAXOSMITHKLINE-US2021089122

PATIENT
  Age: 46 Year
  Sex: Female

DRUGS (3)
  1. BENLYSTA [Suspect]
     Active Substance: BELIMUMAB
     Indication: SYSTEMIC LUPUS ERYTHEMATOSUS
     Dosage: UNK(200MG/ML)
  2. BENLYSTA [Suspect]
     Active Substance: BELIMUMAB
     Indication: FIBROMYALGIA
  3. BENLYSTA [Suspect]
     Active Substance: BELIMUMAB
     Indication: CUTANEOUS LUPUS ERYTHEMATOSUS

REACTIONS (5)
  - Injection site pain [Unknown]
  - Injection site bruising [Unknown]
  - Injection site erythema [Unknown]
  - Wrong technique in product usage process [Unknown]
  - Product complaint [Unknown]

NARRATIVE: CASE EVENT DATE: 20210417
